FAERS Safety Report 8036168-8 (Version None)
Quarter: 2011Q4

REPORT INFORMATION
  Report Type: 
  Country: None (occurrence: None)
  Receive Date: 20111202
  Receipt Date: 20110826
  Transmission Date: 20120403
  Serious: No
  Sender: FDA-Public Use
  Company Number: PHEH2011US02759

PATIENT
  Age: 39 Year
  Sex: Male

DRUGS (4)
  1. FANAPT [Suspect]
     Indication: SCHIZOPHRENIA
     Dosage: 8 MG, BID
     Dates: start: 20110822, end: 20110826
  2. LITHIUM CARBONATE [Concomitant]
  3. CLONOPIN [Concomitant]
  4. TRAMADOL HCL [Concomitant]

REACTIONS (2)
  - PSYCHOMOTOR HYPERACTIVITY [None]
  - INSOMNIA [None]
